FAERS Safety Report 4998608-8 (Version None)
Quarter: 2006Q2

REPORT INFORMATION
  Report Type: 
  Country: None (occurrence: None)
  Receive Date: 20060509
  Receipt Date: 20060424
  Transmission Date: 20061013
  Serious: Yes (Hospitalization)
  Sender: FDA-Public Use
  Company Number: GXKR2006DK02422

PATIENT
  Age: 65 Year
  Sex: Female

DRUGS (9)
  1. MELLIMET (NGX) (METFORMIN) TABLET [Suspect]
     Indication: DIABETES MELLITUS
     Dosage: 500 MG, BID2SDO, ORAL
     Route: 048
     Dates: start: 20060314
  2. LEVOTHYROXINE SODIUM [Concomitant]
  3. GABAPENTIN [Concomitant]
  4. CIPRAMIL /NET/ (CITALOPRAM HYDROCHLORIDE) [Concomitant]
  5. PRAVACHOL [Concomitant]
  6. COZAAR [Concomitant]
  7. FISH OIL (FISH OIL) [Concomitant]
  8. ACTRAPID HUMAN (INSULIN HUMAN) [Concomitant]
  9. INSULATARD NPH HUMAN [Concomitant]

REACTIONS (2)
  - HYPOGLYCAEMIA [None]
  - WRIST FRACTURE [None]
